FAERS Safety Report 8792216 (Version 3)
Quarter: 2013Q1

REPORT INFORMATION
  Report Type: Report from Study
  Country: US (occurrence: US)
  Receive Date: 20120918
  Receipt Date: 20130306
  Transmission Date: 20140127
  Serious: Yes (Other)
  Sender: FDA-Public Use
  Company Number: US-BAYER-2012-086744

PATIENT
  Age: 66 Year
  Sex: Male

DRUGS (3)
  1. NEXAVAR [Suspect]
     Indication: PANCREATIC CARCINOMA
     Dosage: 200MG THE EVENING OF INFUSION, THEN 200MG Q 12HOURS X 5 TABLETS (FOR 3 DAYS POST INFUSION)
     Dates: start: 20120814, end: 20130212
  2. XELODA [Concomitant]
     Route: 048
  3. ANTINEOPLASTIC AGENTS [Concomitant]
     Dosage: UNK
     Dates: start: 201203

REACTIONS (8)
  - Abasia [Recovering/Resolving]
  - Pain in extremity [Recovering/Resolving]
  - Erythema [Recovering/Resolving]
  - Skin exfoliation [Recovering/Resolving]
  - Erythema [Not Recovered/Not Resolved]
  - Pain in extremity [Not Recovered/Not Resolved]
  - Skin exfoliation [Not Recovered/Not Resolved]
  - Off label use [None]
